FAERS Safety Report 26041219 (Version 1)
Quarter: 2025Q4

REPORT INFORMATION
  Report Type: Spontaneous
  Country: JP (occurrence: JP)
  Receive Date: 20251113
  Receipt Date: 20251113
  Transmission Date: 20260118
  Serious: Yes (Other)
  Sender: PFIZER
  Company Number: JP-GENMAB-2025-03474

PATIENT
  Age: 38 Year
  Sex: Female

DRUGS (2)
  1. TIVDAK [Suspect]
     Active Substance: TISOTUMAB VEDOTIN-TFTV
     Indication: Cervix carcinoma
     Dosage: 135 MILLIGRAM, CYCLE 1, CYCLE 2
     Dates: start: 20250903, end: 2025
  2. TIVDAK [Suspect]
     Active Substance: TISOTUMAB VEDOTIN-TFTV
     Dosage: 140 MILLIGRAM, CYCLE 3
     Dates: start: 20251015

REACTIONS (2)
  - Interstitial lung disease [Not Recovered/Not Resolved]
  - Lung opacity [Not Recovered/Not Resolved]

NARRATIVE: CASE EVENT DATE: 20251030
